FAERS Safety Report 18799209 (Version 1)
Quarter: 2021Q1

REPORT INFORMATION
  Report Type: Spontaneous
  Country: US (occurrence: US)
  Receive Date: 20210128
  Receipt Date: 20210128
  Transmission Date: 20210419
  Serious: No
  Sender: FDA-Public Use
  Company Number: US-SA-2021SA026625

PATIENT
  Age: 33 Year
  Sex: Female

DRUGS (4)
  1. DUPIXENT [Suspect]
     Active Substance: DUPILUMAB
     Indication: ASTHMA
  2. DUPIXENT [Suspect]
     Active Substance: DUPILUMAB
     Indication: NASAL POLYPS
     Dosage: 300 MG, QOW
  3. DUPIXENT [Suspect]
     Active Substance: DUPILUMAB
     Indication: HYPERSENSITIVITY
  4. DUPIXENT [Suspect]
     Active Substance: DUPILUMAB
     Indication: ASPIRIN-EXACERBATED RESPIRATORY DISEASE

REACTIONS (2)
  - Intentional dose omission [Unknown]
  - Product use in unapproved indication [Unknown]

NARRATIVE: CASE EVENT DATE: 20210114
